FAERS Safety Report 22354539 (Version 1)
Quarter: 2023Q2

REPORT INFORMATION
  Report Type: Spontaneous
  Country: US (occurrence: None)
  Receive Date: 20230522
  Receipt Date: 20230522
  Transmission Date: 20230721
  Serious: No
  Sender: FDA-Public Use
  Company Number: None

PATIENT
  Age: 53 Year
  Sex: Male
  Weight: 99 kg

DRUGS (1)
  1. TIANEPTINE [Suspect]
     Active Substance: TIANEPTINE
     Indication: Pain management
     Dosage: OTHER QUANTITY : 1 CAPFUL;?
     Route: 048
     Dates: start: 20230519, end: 20230519

REACTIONS (8)
  - Dizziness [None]
  - Confusional state [None]
  - Dyskinesia [None]
  - Fall [None]
  - Hallucination [None]
  - Panic reaction [None]
  - Fear [None]
  - Tremor [None]

NARRATIVE: CASE EVENT DATE: 20230519
